FAERS Safety Report 25900239 (Version 1)
Quarter: 2025Q4

REPORT INFORMATION
  Report Type: Spontaneous
  Country: BR (occurrence: BR)
  Receive Date: 20251009
  Receipt Date: 20251009
  Transmission Date: 20260117
  Serious: Yes (Hospitalization, Other)
  Sender: MYLAN
  Company Number: BR-MYLANLABS-2025M1084042

PATIENT
  Age: 89 Year
  Sex: Female
  Weight: 54 kg

DRUGS (24)
  1. LYRICA [Suspect]
     Active Substance: PREGABALIN
     Indication: Bone pain
     Dosage: 75 MILLIGRAM, PM (ONCE A DAY IN THE NIGHT)
     Route: 048
     Dates: end: 20250926
  2. LYRICA [Suspect]
     Active Substance: PREGABALIN
     Dosage: 75 MILLIGRAM, PM (ONCE A DAY IN THE NIGHT)
     Dates: end: 20250926
  3. LYRICA [Suspect]
     Active Substance: PREGABALIN
     Dosage: 75 MILLIGRAM, PM (ONCE A DAY IN THE NIGHT)
     Dates: end: 20250926
  4. LYRICA [Suspect]
     Active Substance: PREGABALIN
     Dosage: 75 MILLIGRAM, PM (ONCE A DAY IN THE NIGHT)
     Route: 048
     Dates: end: 20250926
  5. LYRICA [Suspect]
     Active Substance: PREGABALIN
     Dosage: 75 MILLIGRAM, BID (IN THE MORNING AND AT NIGHT)
     Route: 048
     Dates: start: 20250927, end: 20250928
  6. LYRICA [Suspect]
     Active Substance: PREGABALIN
     Dosage: 75 MILLIGRAM, BID (IN THE MORNING AND AT NIGHT)
     Dates: start: 20250927, end: 20250928
  7. LYRICA [Suspect]
     Active Substance: PREGABALIN
     Dosage: 75 MILLIGRAM, BID (IN THE MORNING AND AT NIGHT)
     Dates: start: 20250927, end: 20250928
  8. LYRICA [Suspect]
     Active Substance: PREGABALIN
     Dosage: 75 MILLIGRAM, BID (IN THE MORNING AND AT NIGHT)
     Route: 048
     Dates: start: 20250927, end: 20250928
  9. LANTUS [Concomitant]
     Active Substance: INSULIN GLARGINE
     Indication: Type 2 diabetes mellitus
     Dosage: 35 INTERNATIONAL UNIT, AM (IN THE MORNING)
  10. LANTUS [Concomitant]
     Active Substance: INSULIN GLARGINE
     Dosage: 35 INTERNATIONAL UNIT, AM (IN THE MORNING)
     Route: 065
  11. LANTUS [Concomitant]
     Active Substance: INSULIN GLARGINE
     Dosage: 35 INTERNATIONAL UNIT, AM (IN THE MORNING)
     Route: 065
  12. LANTUS [Concomitant]
     Active Substance: INSULIN GLARGINE
     Dosage: 35 INTERNATIONAL UNIT, AM (IN THE MORNING)
  13. NOVORAPID [Concomitant]
     Active Substance: INSULIN ASPART
     Indication: Type 2 diabetes mellitus
     Dosage: UNK, PRN (THREE TIMES A DAY DEPENDING ON BLOOD GLUCOSE LEVELS)
  14. NOVORAPID [Concomitant]
     Active Substance: INSULIN ASPART
     Dosage: UNK, PRN (THREE TIMES A DAY DEPENDING ON BLOOD GLUCOSE LEVELS)
     Route: 065
  15. NOVORAPID [Concomitant]
     Active Substance: INSULIN ASPART
     Dosage: UNK, PRN (THREE TIMES A DAY DEPENDING ON BLOOD GLUCOSE LEVELS)
     Route: 065
  16. NOVORAPID [Concomitant]
     Active Substance: INSULIN ASPART
     Dosage: UNK, PRN (THREE TIMES A DAY DEPENDING ON BLOOD GLUCOSE LEVELS)
  17. PURAN [Concomitant]
     Active Substance: LEVOTHYROXINE SODIUM
     Indication: Hypothyroidism
     Dosage: UNK, QD (ONCE A DAY IN FASTING; SINCE OVER 30 YEARS)
  18. PURAN [Concomitant]
     Active Substance: LEVOTHYROXINE SODIUM
     Dosage: UNK, QD (ONCE A DAY IN FASTING; SINCE OVER 30 YEARS)
     Route: 065
  19. PURAN [Concomitant]
     Active Substance: LEVOTHYROXINE SODIUM
     Dosage: UNK, QD (ONCE A DAY IN FASTING; SINCE OVER 30 YEARS)
     Route: 065
  20. PURAN [Concomitant]
     Active Substance: LEVOTHYROXINE SODIUM
     Dosage: UNK, QD (ONCE A DAY IN FASTING; SINCE OVER 30 YEARS)
  21. FULVESTRANT [Concomitant]
     Active Substance: FULVESTRANT
     Indication: Breast cancer recurrent
     Dosage: 1 DOSAGE FORM, Q2W (EVERY 15 DAYS)
  22. FULVESTRANT [Concomitant]
     Active Substance: FULVESTRANT
     Dosage: 1 DOSAGE FORM, Q2W (EVERY 15 DAYS)
     Route: 042
  23. FULVESTRANT [Concomitant]
     Active Substance: FULVESTRANT
     Dosage: 1 DOSAGE FORM, Q2W (EVERY 15 DAYS)
     Route: 042
  24. FULVESTRANT [Concomitant]
     Active Substance: FULVESTRANT
     Dosage: 1 DOSAGE FORM, Q2W (EVERY 15 DAYS)

REACTIONS (5)
  - Herpes zoster [Recovered/Resolved]
  - Chronic kidney disease [Not Recovered/Not Resolved]
  - Chest pain [Unknown]
  - Muscle spasms [Not Recovered/Not Resolved]
  - Off label use [Recovered/Resolved]

NARRATIVE: CASE EVENT DATE: 20250901
